FAERS Safety Report 6055967-5 (Version None)
Quarter: 2009Q1

REPORT INFORMATION
  Report Type: 
  Country: None (occurrence: None)
  Receive Date: 20090128
  Receipt Date: 20090128
  Transmission Date: 20090719
  Serious: Yes (Death, Life-Threatening)
  Sender: FDA-Public Use
  Company Number: JP-B.I. PHARMACEUTICALS,INC./RIDGEFIELD-2008-BP-18723NB

PATIENT
  Sex: Male

DRUGS (2)
  1. MICARDIS [Suspect]
     Indication: HYPERTENSION
     Dosage: 40MG
     Route: 048
     Dates: start: 20060929, end: 20080515
  2. PAXIL [Concomitant]
     Indication: DEPRESSION
     Dosage: 20MG
     Route: 048
     Dates: start: 20060921, end: 20080515

REACTIONS (2)
  - EMPHYSEMA [None]
  - SUDDEN DEATH [None]
